FAERS Safety Report 15311127 (Version 10)
Quarter: 2021Q2

REPORT INFORMATION
  Report Type: Spontaneous
  Country: US (occurrence: US)
  Receive Date: 20180823
  Receipt Date: 20210406
  Transmission Date: 20210716
  Serious: Yes (Other)
  Sender: FDA-Public Use
  Company Number: US-PFIZER INC-2018340320

PATIENT
  Age: 50 Year
  Sex: Female
  Weight: 129 kg

DRUGS (3)
  1. LYRICA [Suspect]
     Active Substance: PREGABALIN
     Dosage: 100 MG, THREE TIMES A DAY
     Route: 048
     Dates: start: 2017
  2. MORPHINE [Concomitant]
     Active Substance: MORPHINE
     Dosage: UNK
  3. LYRICA [Suspect]
     Active Substance: PREGABALIN
     Indication: DIABETIC NEUROPATHY
     Dosage: 300 MG (3 OF 100 MG CAPSULE), DAILY
     Route: 048
     Dates: start: 2017

REACTIONS (10)
  - Pancreatic mass [Unknown]
  - Aortic disorder [Unknown]
  - Sarcoidosis [Unknown]
  - Hepatic mass [Unknown]
  - Intentional product misuse [Unknown]
  - Neoplasm recurrence [Not Recovered/Not Resolved]
  - Cardiac neoplasm unspecified [Unknown]
  - Blindness [Unknown]
  - Memory impairment [Unknown]
  - Nasopharyngitis [Unknown]
